FAERS Safety Report 10084684 (Version 1)
Quarter: 2014Q2

REPORT INFORMATION
  Report Type: Spontaneous
  Country: US (occurrence: US)
  Receive Date: 20140417
  Receipt Date: 20140417
  Transmission Date: 20141212
  Serious: No
  Sender: FDA-Public Use
  Company Number: US-PFIZER INC-2014104973

PATIENT
  Sex: Female

DRUGS (10)
  1. DETROL [Suspect]
     Dosage: UNK
  2. LIPITOR [Suspect]
     Dosage: UNK
  3. INDAPAMIDE [Suspect]
     Dosage: UNK
  4. LISINOPRIL [Suspect]
     Dosage: UNK
  5. ASPIRIN [Suspect]
     Dosage: UNK
  6. CELEXA [Suspect]
     Dosage: UNK
  7. COREG [Suspect]
     Dosage: UNK
  8. LASIX [Suspect]
     Dosage: UNK
  9. VENTOLIN [Suspect]
     Dosage: UNK
  10. WELLBUTRIN XL [Suspect]
     Dosage: UNK

REACTIONS (1)
  - Drug hypersensitivity [Unknown]
